FAERS Safety Report 5333141-5 (Version None)
Quarter: 2007Q2

REPORT INFORMATION
  Report Type: 
  Country: None (occurrence: None)
  Receive Date: 20070521
  Receipt Date: 20070521
  Transmission Date: 20071010
  Serious: Yes (Life-Threatening, Other)
  Sender: FDA-Public Use
  Company Number: None

PATIENT
  Age: 15 Year
  Sex: Male
  Weight: 34 kg

DRUGS (1)
  1. DIAZEPAM [Suspect]
     Indication: GASTROINTESTINAL PAIN
     Dosage: 1.6 MG Q 6 HRS IV
     Route: 042

REACTIONS (17)
  - APHASIA [None]
  - ASTHENIA [None]
  - BLOOD CREATININE INCREASED [None]
  - BLOOD PRESSURE DECREASED [None]
  - DRUG INEFFECTIVE [None]
  - DYSPNOEA [None]
  - FACIAL PALSY [None]
  - FEELING HOT [None]
  - HEADACHE [None]
  - OLIGURIA [None]
  - OPHTHALMOPLEGIA [None]
  - PARAESTHESIA ORAL [None]
  - PERIPHERAL COLDNESS [None]
  - RETCHING [None]
  - SKIN DISCOLOURATION [None]
  - THROAT LESION [None]
  - WHITE BLOOD CELL COUNT INCREASED [None]
